FAERS Safety Report 13013106 (Version 1)
Quarter: 2016Q4

REPORT INFORMATION
  Report Type: Spontaneous
  Country: US (occurrence: US)
  Receive Date: 20161208
  Receipt Date: 20161208
  Transmission Date: 20170207
  Serious: Yes (Death)
  Sender: FDA-Public Use
  Company Number: None

PATIENT
  Age: 81 Year
  Sex: Female
  Weight: 49 kg

DRUGS (1)
  1. ELIQUIS [Suspect]
     Active Substance: APIXABAN
     Indication: ATRIAL FIBRILLATION
     Route: 048
     Dates: start: 20151201, end: 20161005

REACTIONS (6)
  - Nausea [None]
  - Confusional state [None]
  - Headache [None]
  - Post procedural complication [None]
  - Asthenia [None]
  - Vomiting [None]

NARRATIVE: CASE EVENT DATE: 20161005
